FAERS Safety Report 4977526-5 (Version None)
Quarter: 2006Q2

REPORT INFORMATION
  Report Type: 
  Country: None (occurrence: None)
  Receive Date: 20060413
  Receipt Date: 20060331
  Transmission Date: 20061013
  Serious: Yes (Life-Threatening)
  Sender: FDA-Public Use
  Company Number: 2006046807

PATIENT
  Age: 46 Year
  Sex: Female

DRUGS (1)
  1. CYTOTEC [Suspect]
     Indication: ABORTION INDUCED
     Dosage: VAGINAL
     Route: 067
     Dates: start: 20060227, end: 20060228

REACTIONS (5)
  - ABDOMINAL PAIN [None]
  - OVERDOSE [None]
  - PYREXIA [None]
  - RENAL FAILURE [None]
  - SHOCK [None]
